FAERS Safety Report 17457676 (Version 1)
Quarter: 2020Q1

REPORT INFORMATION
  Report Type: Spontaneous
  Country: IT (occurrence: IT)
  Receive Date: 20200225
  Receipt Date: 20200225
  Transmission Date: 20200409
  Serious: Yes (Other)
  Sender: FDA-Public Use
  Company Number: NVSC2020IT050537

PATIENT
  Age: 41 Year
  Sex: Female

DRUGS (7)
  1. JINARC [Suspect]
     Active Substance: TOLVAPTAN
     Dosage: 90 MG, QD
     Route: 065
  2. JINARC [Suspect]
     Active Substance: TOLVAPTAN
     Dosage: 45 MG, QD
     Route: 065
  3. JINARC [Suspect]
     Active Substance: TOLVAPTAN
     Dosage: 60 MG, QD
     Route: 065
  4. AMOXICILLIN,CLAVULANIC ACID [Suspect]
     Active Substance: AMOXICILLIN\CLAVULANIC ACID
     Indication: PYREXIA
     Dosage: UNK UNK, BID (825/175 MG)
     Route: 065
  5. AMOXICILLIN,CLAVULANIC ACID [Suspect]
     Active Substance: AMOXICILLIN\CLAVULANIC ACID
     Indication: PHARYNGITIS
  6. JINARC [Suspect]
     Active Substance: TOLVAPTAN
     Indication: CONGENITAL CYSTIC KIDNEY DISEASE
     Dosage: 15 MG, QD
     Route: 065
  7. JINARC [Suspect]
     Active Substance: TOLVAPTAN
     Dosage: 30 MG, QD
     Route: 065

REACTIONS (1)
  - Drug-induced liver injury [Recovering/Resolving]
